FAERS Safety Report 6311746-2 (Version None)
Quarter: 2009Q3

REPORT INFORMATION
  Report Type: 
  Country: None (occurrence: None)
  Receive Date: 20090813
  Receipt Date: 20090813
  Transmission Date: 20100115
  Serious: No
  Sender: FDA-Public Use
  Company Number: None

PATIENT
  Sex: Male
  Weight: 74.8435 kg

DRUGS (2)
  1. METOPROLOL SUCCINATE [Suspect]
     Indication: HYPERTENSION
     Dosage: 25 MG 1 OR 2 X DAY P.O.
     Route: 048
     Dates: end: 20080901
  2. ACTIQ [Suspect]
     Indication: PAIN
     Dosage: 400 MCG 1 PER DAY P.O.
     Route: 048
     Dates: end: 20080601

REACTIONS (6)
  - DEPRESSION [None]
  - DIARRHOEA [None]
  - DIZZINESS [None]
  - DYSURIA [None]
  - NAUSEA [None]
  - PRURITUS [None]
